FAERS Safety Report 8988497 (Version 1)
Quarter: 2012Q4

REPORT INFORMATION
  Report Type: Spontaneous
  Country: US (occurrence: None)
  Receive Date: 20121224
  Receipt Date: 20121224
  Transmission Date: 20130627
  Serious: Yes (Other)
  Sender: FDA-Public Use
  Company Number: None

PATIENT
  Age: 70 Year
  Sex: Female
  Weight: 73.03 kg

DRUGS (2)
  1. LIPODOX [Suspect]
     Indication: OVARIAN CANCER
     Dosage: 76mg in D5W  once  IV
     Route: 042
     Dates: start: 20121212, end: 20121212
  2. LIPODOX [Suspect]

REACTIONS (5)
  - Feeling hot [None]
  - Erythema [None]
  - Flushing [None]
  - Swollen tongue [None]
  - Pharyngeal oedema [None]
